FAERS Safety Report 23552377 (Version 1)
Quarter: 2024Q1

REPORT INFORMATION
  Report Type: Spontaneous
  Country: US (occurrence: US)
  Receive Date: 20240222
  Receipt Date: 20240222
  Transmission Date: 20240410
  Serious: Yes (Other)
  Sender: FDA-Public Use
  Company Number: US-Kiniksa Pharmaceuticals Ltd.-2023KPU000306

PATIENT
  Age: 42 Year
  Sex: Female

DRUGS (3)
  1. ARCALYST [Suspect]
     Active Substance: RILONACEPT
     Indication: Muckle-Wells syndrome
     Route: 058
  2. ARCALYST [Suspect]
     Active Substance: RILONACEPT
     Route: 058
  3. CANNABIS SATIVA SUBSP. INDICA TOP [Concomitant]
     Active Substance: CANNABIS SATIVA SUBSP. INDICA TOP
     Indication: Anxiety

REACTIONS (12)
  - Therapeutic response decreased [Unknown]
  - Pyrexia [Unknown]
  - Vasculitis [Unknown]
  - Necrotising soft tissue infection [Unknown]
  - Stress [Unknown]
  - Anxiety [Unknown]
  - Product solubility abnormal [Unknown]
  - Wrong technique in product usage process [Unknown]
  - Injection site bruising [Unknown]
  - Injection site vasculitis [Unknown]
  - Tooth infection [Unknown]
  - Toothache [Unknown]

NARRATIVE: CASE EVENT DATE: 20230322
